FAERS Safety Report 5055112-9 (Version None)
Quarter: 2006Q3

REPORT INFORMATION
  Report Type: 
  Country: None (occurrence: None)
  Receive Date: 20060714
  Receipt Date: 20060706
  Transmission Date: 20061208
  Serious: Yes (Hospitalization)
  Sender: FDA-Public Use
  Company Number: ESWYE411220FEB06

PATIENT
  Age: 73 Year
  Sex: Male

DRUGS (8)
  1. RAPAMUNE [Suspect]
     Indication: PROPHYLAXIS AGAINST TRANSPLANT REJECTION
     Dosage: 3 MG 1X PER 1 DAY ORAL
     Route: 048
     Dates: start: 20040615
  2. CYCLOSPORINE [Concomitant]
  3. ATORVASTATIN CALCIUM [Concomitant]
  4. TAMSULOSIN HCL [Concomitant]
  5. ARANESP [Concomitant]
  6. PREDNISONE TAB [Concomitant]
  7. LOSARTAN POTASSIUM [Concomitant]
  8. ACETYLSALICYLSYRE (ACETYLSALICYLIC ACID) [Concomitant]

REACTIONS (3)
  - DYSPNOEA [None]
  - RENAL IMPAIRMENT [None]
  - SPUTUM PURULENT [None]
